FAERS Safety Report 10912638 (Version 1)
Quarter: 2015Q1

REPORT INFORMATION
  Report Type: Spontaneous
  Country: US (occurrence: None)
  Receive Date: 20150310
  Receipt Date: 20150310
  Transmission Date: 20150721
  Serious: No
  Sender: FDA-Public Use
  Company Number: None

PATIENT
  Age: 76 Year
  Sex: Male
  Weight: 88.45 kg

DRUGS (6)
  1. ULORIC [Concomitant]
     Active Substance: FEBUXOSTAT
  2. PRIMIDONE. [Suspect]
     Active Substance: PRIMIDONE
     Indication: TREMOR
     Dosage: BY MOUTH
     Dates: start: 20150212, end: 20150212
  3. TAMSULOSIN [Concomitant]
     Active Substance: TAMSULOSIN
  4. MULTIVITAMIN [Concomitant]
     Active Substance: VITAMINS
  5. SIMVASTATIN. [Concomitant]
     Active Substance: SIMVASTATIN
  6. NADOLOL. [Concomitant]
     Active Substance: NADOLOL

REACTIONS (1)
  - Blood pressure increased [None]

NARRATIVE: CASE EVENT DATE: 20150212
